FAERS Safety Report 21247263 (Version 1)
Quarter: 2022Q3

REPORT INFORMATION
  Report Type: Spontaneous
  Country: US (occurrence: None)
  Receive Date: 20220823
  Receipt Date: 20220823
  Transmission Date: 20221027
  Serious: Yes (Hospitalization)
  Sender: FDA-Public Use
  Company Number: None

PATIENT
  Age: 73 Year
  Sex: Male
  Weight: 126 kg

DRUGS (1)
  1. ABIRATERONE [Suspect]
     Active Substance: ABIRATERONE
     Indication: Prostate cancer
     Dates: start: 20220302, end: 20220722

REACTIONS (4)
  - Diarrhoea [None]
  - Abdominal discomfort [None]
  - Hypophagia [None]
  - Therapy interrupted [None]

NARRATIVE: CASE EVENT DATE: 20220819
